FAERS Safety Report 18862444 (Version 1)
Quarter: 2021Q1

REPORT INFORMATION
  Report Type: Spontaneous
  Country: TH (occurrence: TH)
  Receive Date: 20210208
  Receipt Date: 20210208
  Transmission Date: 20210420
  Serious: Yes (Other)
  Sender: FDA-Public Use
  Company Number: TH-VIRTUS PHARMACEUTICALS, LLC-2021VTS00005

PATIENT
  Age: 40 Year
  Sex: Male

DRUGS (13)
  1. AZITHROMYCIN ANHYDROUS. [Concomitant]
     Active Substance: AZITHROMYCIN ANHYDROUS
     Route: 065
  2. LACTATED RINGERS SOLUTION [Concomitant]
     Active Substance: CALCIUM CHLORIDE\POTASSIUM CHLORIDE\SODIUM CHLORIDE\SODIUM LACTATE
     Dosage: 4.5 LITRES DURING THE FIRST 48 HOURS
     Route: 042
  3. PROPOFOL. [Concomitant]
     Active Substance: PROPOFOL
     Route: 065
  4. FENTANYL. [Concomitant]
     Active Substance: FENTANYL
     Route: 065
  5. MIDAZOLAM. [Concomitant]
     Active Substance: MIDAZOLAM
     Route: 065
  6. ALBUTEROL. [Suspect]
     Active Substance: ALBUTEROL
     Indication: ACUTE RESPIRATORY FAILURE
  7. SALMETEROL/FLUTICASONE METERED DOSE INHALER [Concomitant]
     Dosage: 4 INHALATIONS (25 ?/250 ?) EVERY 12 HOURS
  8. CISATRACURIUM. [Concomitant]
     Active Substance: CISATRACURIUM
     Route: 065
  9. CEFTRIAZONE [Concomitant]
     Route: 065
  10. OSELTAMIVIR [Concomitant]
     Active Substance: OSELTAMIVIR
     Route: 065
  11. ALBUTEROL. [Suspect]
     Active Substance: ALBUTEROL
     Indication: STATUS ASTHMATICUS
     Dosage: 4?8 PUFFS (100 ?G/PUFF) EVERY 15?30 MINUTES
  12. TIOTROPIUM BROMIDE [Concomitant]
     Active Substance: TIOTROPIUM BROMIDE
     Dosage: 4 INHALATIONS (2.5 MCG PER INHALATION) EVERY 12 HOURS
  13. MAGNESIUM SULFATE. [Concomitant]
     Active Substance: MAGNESIUM SULFATE
     Dosage: 2 G
     Route: 042

REACTIONS (1)
  - Lactic acidosis [Recovered/Resolved]
